FAERS Safety Report 8226973-7 (Version None)
Quarter: 2012Q1

REPORT INFORMATION
  Report Type: 
  Country: None (occurrence: None)
  Receive Date: 20120322
  Receipt Date: 20120315
  Transmission Date: 20120608
  Serious: Yes (Other)
  Sender: FDA-Public Use
  Company Number: CA-JNJFOC-20120308190

PATIENT
  Age: 45 Year
  Sex: Female

DRUGS (1)
  1. SIMPONI [Suspect]
     Indication: ANKYLOSING SPONDYLITIS
     Route: 058

REACTIONS (9)
  - HEADACHE [None]
  - DISTURBANCE IN ATTENTION [None]
  - TREMOR [None]
  - BLEPHAROSPASM [None]
  - VOMITING [None]
  - BLINDNESS [None]
  - PALPITATIONS [None]
  - INSOMNIA [None]
  - PARAESTHESIA [None]
